FAERS Safety Report 9880863 (Version 1)
Quarter: 2014Q1

REPORT INFORMATION
  Report Type: Spontaneous
  Country: IT (occurrence: None)
  Receive Date: 20140205
  Receipt Date: 20140205
  Transmission Date: 20141002
  Serious: Yes (Other)
  Sender: FDA-Public Use
  Company Number: 2154041

PATIENT
  Age: 53 Year
  Sex: Female

DRUGS (1)
  1. OXALIPLATIN [Suspect]
     Indication: RECTAL CANCER RECURRENT
     Dosage: 137 MG MILLIGRAM, CYCLICAL, UNKNOWN
     Dates: start: 20131209, end: 20140113

REACTIONS (2)
  - Respiratory failure [None]
  - Erythema [None]
